FAERS Safety Report 5626590-9 (Version None)
Quarter: 2008Q1

REPORT INFORMATION
  Report Type: 
  Country: None (occurrence: None)
  Receive Date: 20080214
  Receipt Date: 20080205
  Transmission Date: 20080703
  Serious: Yes (Other)
  Sender: FDA-Public Use
  Company Number: BE-SANOFI-SYNTHELABO-A01200303844

PATIENT
  Sex: Male

DRUGS (8)
  1. ELVORIN [Concomitant]
     Indication: CHEMOTHERAPY
     Route: 065
     Dates: start: 20030415, end: 20030415
  2. NEUPOGEN [Concomitant]
     Dosage: UNK
     Route: 065
  3. EPREX [Concomitant]
     Dosage: UNK
     Route: 065
  4. NOVABAN [Concomitant]
     Dosage: 1 VIAL
     Route: 065
     Dates: start: 20030415, end: 20030415
  5. NOVABAN [Concomitant]
     Dosage: 1 TABLET DAILY DURING 3 DAYS SINCE DAY 2
     Route: 065
     Dates: start: 20030416, end: 20030418
  6. DEXAMETHASONE TAB [Concomitant]
     Indication: PREMEDICATION
     Route: 065
     Dates: start: 20030415
  7. ELOXATIN [Suspect]
     Indication: COLORECTAL CANCER
     Route: 042
     Dates: start: 20030415, end: 20030415
  8. FLUOROURACIL [Suspect]
     Indication: COLORECTAL CANCER METASTATIC
     Route: 041
     Dates: start: 20030415, end: 20030415

REACTIONS (1)
  - NODULAR REGENERATIVE HYPERPLASIA [None]
